FAERS Safety Report 12788554 (Version 2)
Quarter: 2016Q4

REPORT INFORMATION
  Report Type: Spontaneous
  Country: BR (occurrence: BR)
  Receive Date: 20160928
  Receipt Date: 20161003
  Transmission Date: 20170207
  Serious: Yes (Other)
  Sender: FDA-Public Use
  Company Number: BR-BAUSCH-BL-2016-023734

PATIENT
  Sex: Male
  Weight: 70 kg

DRUGS (2)
  1. TIMOPTOL [Suspect]
     Active Substance: TIMOLOL
     Route: 047
  2. TIMOPTOL [Suspect]
     Active Substance: TIMOLOL
     Indication: INTRAOCULAR PRESSURE INCREASED
     Route: 047
     Dates: start: 1996

REACTIONS (3)
  - Chronic lymphocytic leukaemia [Unknown]
  - Accidental overdose [Unknown]
  - Product quality issue [Unknown]

NARRATIVE: CASE EVENT DATE: 2003
